FAERS Safety Report 8901278 (Version 2)
Quarter: 2013Q1

REPORT INFORMATION
  Report Type: Spontaneous
  Country: US (occurrence: US)
  Receive Date: 20121109
  Receipt Date: 20130118
  Transmission Date: 20140127
  Serious: Yes (Other)
  Sender: FDA-Public Use
  Company Number: US-PFIZER INC-2012279015

PATIENT
  Age: 75 Year
  Sex: Male
  Weight: 80.73 kg

DRUGS (18)
  1. SUTENT [Suspect]
     Indication: RENAL CELL CARCINOMA
     Dosage: 50 MG, DAILY 4 WKS ON 2 WKS OFF
     Route: 048
     Dates: start: 20121016, end: 20121115
  2. CALCIUM [Concomitant]
     Dosage: 500 MG, 2X/DAY
     Route: 048
  3. DROPPERETTE [Concomitant]
     Dosage: 1 GTT, AS DIRECTED
     Route: 047
  4. GLUCOSAMINE HYDROCHLORIDE/CHONDROITIN SULFATE [Concomitant]
     Dosage: 500-400 MG, TAKE 1
     Route: 048
  5. LATANOPROST [Concomitant]
     Dosage: QHS
     Route: 047
  6. LECITHIN [Concomitant]
     Dosage: 1200 MG, 1X/DAY
     Route: 048
  7. LORAZEPAM [Concomitant]
     Indication: NAUSEA
     Dosage: 1 MG,  Q 4H, AS NEEDED
     Route: 048
  8. LOSARTAN POTASSIUM W/HYDROCHLOROTHIAZIDE [Concomitant]
     Dosage: 50-12.5 MG, TAKE 1
     Route: 048
  9. LUTEIN [Concomitant]
     Dosage: 15-0.7 MG TAKE 1
     Route: 048
  10. LYCOPENE [Concomitant]
     Dosage: 10 MG, 1X/DAY
     Route: 048
  11. MAGNESIUM OXIDE [Concomitant]
     Dosage: 250 MG, CHEW 3X/DAY
     Route: 048
  12. PANTOTHENIC ACID [Concomitant]
     Dosage: 500 MG, 1X/DAY
     Route: 048
  13. PROVENTIL HFA [Concomitant]
     Dosage: 90 UG, 2 INHALATIONS AS DIRECTED
     Route: 055
  14. TIMOLOL MALEATE [Concomitant]
     Dosage: 1 GTT, AS DIRECTED
     Route: 047
  15. VITAMIN C [Concomitant]
     Dosage: 500 MG, 2X/DAY
     Route: 048
  16. VYTORIN [Concomitant]
     Dosage: 10-20 MG, TAKE 1
     Route: 048
  17. ZOFRAN [Concomitant]
     Indication: NAUSEA
     Dosage: 8 MG, Q8H AS NEEDED
     Route: 048
  18. WARFARIN [Concomitant]

REACTIONS (7)
  - Epistaxis [Recovering/Resolving]
  - Thrombocytopenia [Unknown]
  - Fatigue [Unknown]
  - Constipation [Unknown]
  - Dyspnoea [Unknown]
  - Dry skin [Unknown]
  - Anaemia [Unknown]
